FAERS Safety Report 16384219 (Version 1)
Quarter: 2019Q2

REPORT INFORMATION
  Report Type: Spontaneous
  Country: US (occurrence: US)
  Receive Date: 20190531
  Receipt Date: 20190531
  Transmission Date: 20190711
  Serious: Yes (Other)
  Sender: FDA-Public Use
  Company Number: None

PATIENT
  Age: 85 Year
  Sex: Female
  Weight: 55.35 kg

DRUGS (9)
  1. TEMOZOLOMIDE. [Suspect]
     Active Substance: TEMOZOLOMIDE
     Indication: BRAIN NEOPLASM MALIGNANT
     Route: 048
     Dates: start: 20190116, end: 20190510
  2. KEPPRA [Concomitant]
     Active Substance: LEVETIRACETAM
  3. LETROZOLE. [Concomitant]
     Active Substance: LETROZOLE
  4. VITAMIN D3 [Concomitant]
     Active Substance: CHOLECALCIFEROL
  5. TUMS [Concomitant]
     Active Substance: CALCIUM CARBONATE
  6. ZINC GLUCONATE [Concomitant]
     Active Substance: ZINC GLUCONATE
  7. ZOCOR [Concomitant]
     Active Substance: SIMVASTATIN
  8. PROTONIX [Concomitant]
     Active Substance: PANTOPRAZOLE SODIUM
  9. AVAPRO [Concomitant]
     Active Substance: IRBESARTAN

REACTIONS (1)
  - Hospice care [None]
